FAERS Safety Report 15219828 (Version 1)
Quarter: 2018Q4

REPORT INFORMATION
  Report Type: Spontaneous
  Country: DE (occurrence: DE)
  Receive Date: 20180731
  Receipt Date: 20180731
  Transmission Date: 20190204
  Serious: Yes (Other)
  Sender: FDA-Public Use
  Company Number: DE-HIKMA PHARMACEUTICALS USA INC.-DE-H14001-18-06353

PATIENT
  Age: 56 Year
  Sex: Female
  Weight: 77 kg

DRUGS (5)
  1. CAPECITABINE. [Suspect]
     Active Substance: CAPECITABINE
     Indication: BREAST CANCER
     Route: 048
     Dates: start: 20141127, end: 20150223
  2. LAXOBERAL [Concomitant]
     Active Substance: SODIUM PICOSULFATE
     Indication: PRODUCT USED FOR UNKNOWN INDICATION
     Route: 048
     Dates: start: 20150109
  3. NOVAMINE [Concomitant]
     Active Substance: ALANINE\ARGININE\ASPARTIC ACID\GLUTAMIC ACID\GLYCINE\HISTIDINE\ISOLEUCINE\LEUCINE\LYSINE ACETATE\METHIONINE\PHENYLALANINE\PROLINE\SERINE\THREONINE\TRYPTOPHAN\TYROSINE\VALINE
     Indication: PRODUCT USED FOR UNKNOWN INDICATION
     Route: 048
     Dates: start: 20141204
  4. BEVACIZUMAB. [Suspect]
     Active Substance: BEVACIZUMAB
     Route: 042
     Dates: start: 20150223, end: 20150223
  5. BEVACIZUMAB. [Suspect]
     Active Substance: BEVACIZUMAB
     Indication: BREAST CANCER
     Route: 042
     Dates: start: 20141127

REACTIONS (3)
  - Dyspnoea [Not Recovered/Not Resolved]
  - Proteinuria [Not Recovered/Not Resolved]
  - Flank pain [Not Recovered/Not Resolved]

NARRATIVE: CASE EVENT DATE: 20150109
